FAERS Safety Report 5549606-7 (Version None)
Quarter: 2007Q4

REPORT INFORMATION
  Report Type: 
  Country: None (occurrence: None)
  Receive Date: 20071212
  Receipt Date: 20070514
  Transmission Date: 20080405
  Serious: No
  Sender: FDA-Public Use
  Company Number: US-AMGEN-KDL224506

PATIENT
  Sex: Male

DRUGS (1)
  1. ENBREL [Suspect]
     Indication: PSORIASIS
     Route: 058
     Dates: start: 20061020

REACTIONS (5)
  - FACIAL PALSY [None]
  - HYPOAESTHESIA ORAL [None]
  - MUSCLE TWITCHING [None]
  - NERVE INJURY [None]
  - PAIN IN EXTREMITY [None]
